FAERS Safety Report 6831903-6 (Version None)
Quarter: 2010Q3

REPORT INFORMATION
  Report Type: 
  Country: None (occurrence: None)
  Receive Date: 20100712
  Receipt Date: 20100701
  Transmission Date: 20110219
  Serious: Yes (Hospitalization)
  Sender: FDA-Public Use
  Company Number: US-ASTRAZENECA-2010SE20197

PATIENT
  Age: 679 Month
  Sex: Female
  Weight: 76.2 kg

DRUGS (20)
  1. SEROQUEL [Suspect]
     Indication: BIPOLAR I DISORDER
     Route: 048
     Dates: start: 20050101
  2. ZOLPIDEM [Concomitant]
  3. DIOVAN HCT [Concomitant]
     Dosage: 160/12.5 MG
  4. OXYCODONE HCL [Concomitant]
  5. LYRICA [Concomitant]
  6. NEXIUM [Concomitant]
  7. CLONAZEPAM [Concomitant]
  8. TOVIAZ [Concomitant]
  9. HYDROCODONE BITARTRATE [Concomitant]
  10. OXYBUTYNIN CHLORIDE [Concomitant]
  11. PERCOCET [Concomitant]
  12. MECLIZINE [Concomitant]
  13. ANTIVERT [Concomitant]
     Indication: DIZZINESS
  14. VICODIN [Concomitant]
     Dosage: 5/500
  15. DITROPAN [Concomitant]
  16. KLONOPIN [Concomitant]
     Indication: ANXIETY
  17. AMBIEN [Concomitant]
  18. LEVOTHYROXINE [Concomitant]
  19. MACRODANTIN [Concomitant]
  20. NYSTATIN [Concomitant]

REACTIONS (5)
  - APHASIA [None]
  - DRUG DOSE OMISSION [None]
  - NEUROPATHY PERIPHERAL [None]
  - PERNICIOUS ANAEMIA [None]
  - TRANSIENT ISCHAEMIC ATTACK [None]
